FAERS Safety Report 9993089 (Version 2)
Quarter: 2014Q1

REPORT INFORMATION
  Report Type: Spontaneous
  Country: US (occurrence: US)
  Receive Date: 20140310
  Receipt Date: 20140310
  Transmission Date: 20141002
  Serious: No
  Sender: FDA-Public Use
  Company Number: US-ABBVIE-13P-163-1091598-00

PATIENT
  Age: 25 Year
  Sex: Female
  Weight: 57.66 kg

DRUGS (4)
  1. LUPRON DEPOT [Suspect]
     Indication: ENDOMETRIOSIS
     Dosage: LAST INJECTION WAS MAR 2013
     Route: 030
     Dates: start: 20130307
  2. LUPRON DEPOT [Suspect]
     Indication: AMENORRHOEA
  3. NORETHINDRONE ACETATE [Concomitant]
     Indication: PROPHYLAXIS
     Route: 048
     Dates: start: 2012, end: 2013
  4. NORETHINDRONE ACETATE [Concomitant]
     Route: 048
     Dates: start: 2013

REACTIONS (2)
  - Vaginal haemorrhage [Not Recovered/Not Resolved]
  - Pain [Not Recovered/Not Resolved]
